FAERS Safety Report 9802499 (Version 2)
Quarter: 2014Q1

REPORT INFORMATION
  Report Type: Spontaneous
  Country: NL (occurrence: NL)
  Receive Date: 20140107
  Receipt Date: 20140110
  Transmission Date: 20141002
  Serious: Yes (Hospitalization, Other)
  Sender: FDA-Public Use
  Company Number: NL-ROCHE-1329669

PATIENT
  Age: 76 Year
  Sex: Male

DRUGS (7)
  1. XELODA [Suspect]
     Indication: GASTRIC CANCER
     Route: 048
     Dates: start: 20131105
  2. XELODA [Suspect]
     Route: 048
     Dates: start: 20131126
  3. ESOMEPRAZOLE [Concomitant]
     Route: 065
  4. PRAVASTATINE [Concomitant]
     Route: 065
  5. IRBESARTAN [Concomitant]
     Route: 065
  6. BISOPROLOL [Concomitant]
     Route: 065
  7. MARCOUMAR [Concomitant]
     Route: 065

REACTIONS (4)
  - Toxicity to various agents [Recovering/Resolving]
  - Mucosal inflammation [Recovered/Resolved]
  - Diarrhoea [Recovered/Resolved]
  - Sepsis [Recovered/Resolved]
